FAERS Safety Report 6146889-X (Version None)
Quarter: 2009Q2

REPORT INFORMATION
  Report Type: 
  Country: None (occurrence: None)
  Receive Date: 20090406
  Receipt Date: 20090406
  Transmission Date: 20091009
  Serious: Yes (Death)
  Sender: FDA-Public Use
  Company Number: None

PATIENT
  Sex: Female
  Weight: 42 kg

DRUGS (1)
  1. CETUXIMAB [Suspect]
     Indication: LARYNGEAL CANCER
     Dosage: 400 MG/M2, LOADING, IV
     Route: 042
     Dates: start: 20090126

REACTIONS (1)
  - DEATH [None]
